FAERS Safety Report 18175092 (Version 1)
Quarter: 2020Q3

REPORT INFORMATION
  Report Type: Spontaneous
  Country: US (occurrence: US)
  Receive Date: 20200820
  Receipt Date: 20200820
  Transmission Date: 20201103
  Serious: No
  Sender: FDA-Public Use
  Company Number: US-LUPIN PHARMACEUTICALS INC.-2020-02443

PATIENT
  Age: 91 Year
  Sex: Female
  Weight: 48.98 kg

DRUGS (1)
  1. CLOBETASOL PROPIONATE OINTMENT USP, 0.05% [Suspect]
     Active Substance: CLOBETASOL PROPIONATE
     Indication: ATROPHY
     Dosage: UNK UNK, QD (ONCE DAILY), STARTED 3?4 YEARS AGO
     Route: 061

REACTIONS (2)
  - Pain in extremity [Not Recovered/Not Resolved]
  - Skin discolouration [Not Recovered/Not Resolved]

NARRATIVE: CASE EVENT DATE: 20200511
